FAERS Safety Report 9321166 (Version 2)
Quarter: 2013Q3

REPORT INFORMATION
  Report Type: Spontaneous
  Country: IT (occurrence: IT)
  Receive Date: 20130531
  Receipt Date: 20130729
  Transmission Date: 20140515
  Serious: Yes (Hospitalization, Other)
  Sender: FDA-Public Use
  Company Number: IT-009507513-1305ITA016842

PATIENT
  Age: 60 Year
  Sex: 0

DRUGS (11)
  1. ENAPREN 5 MG COMPRESSE [Suspect]
     Indication: HYPERTENSION
     Dosage: 15 MG DAILY
     Route: 048
     Dates: start: 20000101
  2. LASIX (FUROSEMIDE) [Suspect]
     Indication: CARDIAC FAILURE
     Dosage: TOTAL DAILY DOSE: 4 POSOLOGICAL UNITS
     Route: 048
     Dates: end: 20130124
  3. LASIX (FUROSEMIDE) [Suspect]
     Dosage: TOTAL DAILY DOSE 8 POSOLOGICAL UNITS
     Route: 048
     Dates: start: 20130125
  4. BISOPROLOL FUMARATE [Concomitant]
     Indication: HYPERTENSION
     Dosage: 1.25 MG
     Route: 048
  5. SPIRONOLACTONE [Concomitant]
     Indication: HYPERTENSION
     Dosage: 25 MG
     Route: 048
  6. ATORVASTATIN [Concomitant]
     Indication: DYSLIPIDAEMIA
     Dosage: 40 MG
     Route: 048
  7. PANTOPRAZOLE [Concomitant]
     Dosage: 20 MG
     Route: 048
  8. IVABRADINE [Concomitant]
     Dosage: 8 MG
     Route: 048
  9. ALLOPURINOL [Concomitant]
     Dosage: 150 MG
     Route: 048
  10. ASPIRIN [Concomitant]
     Indication: MYOCARDIAL ISCHAEMIA
     Dosage: 100 MG
     Route: 048
  11. EFIENT [Concomitant]
     Dosage: 1 POSOLOGICAL UNIT
     Route: 048

REACTIONS (1)
  - Renal failure acute [Recovered/Resolved]
